FAERS Safety Report 6902746-X (Version None)
Quarter: 2010Q3

REPORT INFORMATION
  Report Type: 
  Country: None (occurrence: None)
  Receive Date: 20100803
  Receipt Date: 20080625
  Transmission Date: 20110219
  Serious: No
  Sender: FDA-Public Use
  Company Number: US-PFIZER INC-2008054009

PATIENT
  Sex: Female
  Weight: 93 kg

DRUGS (14)
  1. LYRICA [Suspect]
     Indication: INTERVERTEBRAL DISC DEGENERATION
     Route: 048
  2. LYRICA [Suspect]
     Indication: PAIN
  3. VITAMIN B-12 [Concomitant]
  4. ROZEREM [Concomitant]
  5. KLONOPIN [Concomitant]
  6. CYMBALTA [Concomitant]
  7. ALL OTHER THERAPEUTIC PRODUCTS [Concomitant]
  8. SONATA [Concomitant]
  9. DESYREL [Concomitant]
  10. LISINOPRIL [Concomitant]
  11. ULTRAM [Concomitant]
  12. VITAMIN TAB [Concomitant]
  13. GARLIC [Concomitant]
  14. FISH OIL [Concomitant]

REACTIONS (3)
  - DRUG INEFFECTIVE [None]
  - DRY MOUTH [None]
  - RESTLESSNESS [None]
